FAERS Safety Report 20370336 (Version 3)
Quarter: 2023Q2

REPORT INFORMATION
  Report Type: Other
  Country: JP (occurrence: JP)
  Receive Date: 20220124
  Receipt Date: 20230622
  Transmission Date: 20230721
  Serious: Yes (Life-Threatening, Hospitalization)
  Sender: FDA-Public Use
  Company Number: JP-CHUGAI-2022000557

PATIENT
  Age: 75 Year
  Sex: Male
  Weight: 67.9 kg

DRUGS (8)
  1. ATEZOLIZUMAB [Suspect]
     Active Substance: ATEZOLIZUMAB
     Indication: Non-small cell lung cancer recurrent
     Route: 041
     Dates: start: 20210518, end: 20210609
  2. BEVACIZUMAB [Suspect]
     Active Substance: BEVACIZUMAB
     Indication: Non-small cell lung cancer recurrent
     Route: 041
     Dates: start: 20210518, end: 20210609
  3. OLMESARTAN MEDOXOMIL [Suspect]
     Active Substance: OLMESARTAN MEDOXOMIL
     Indication: Hypertension
     Dosage: UNK UNK, QD
     Route: 048
  4. ROSUVASTATIN [Suspect]
     Active Substance: ROSUVASTATIN
     Indication: Hyperlipidaemia
     Dosage: UNK
     Route: 048
  5. LANSOPRAZOLE [Suspect]
     Active Substance: LANSOPRAZOLE
     Indication: Prophylaxis
     Dosage: UNK
     Route: 048
  6. VILDAGLIPTIN [Suspect]
     Active Substance: VILDAGLIPTIN
     Indication: Diabetes mellitus
     Dosage: UNK MILLIGRAM
     Route: 048
  7. CARBOPLATIN [Concomitant]
     Active Substance: CARBOPLATIN
     Indication: Non-small cell lung cancer recurrent
     Dosage: 450 MILLIGRAM, ONCE/3WEEKS
     Route: 041
     Dates: start: 20210518, end: 20210609
  8. PACLITAXEL [Concomitant]
     Active Substance: PACLITAXEL
     Indication: Non-small cell lung cancer recurrent
     Dosage: 290 MILLIGRAM, ONCE/3WEEKS
     Route: 041
     Dates: start: 20210518, end: 20210609

REACTIONS (2)
  - Immune thrombocytopenia [Recovered/Resolved]
  - Haemoptysis [Unknown]

NARRATIVE: CASE EVENT DATE: 20210601
